FAERS Safety Report 5476907-3 (Version None)
Quarter: 2007Q4

REPORT INFORMATION
  Report Type: 
  Country: None (occurrence: None)
  Receive Date: 20071004
  Receipt Date: 20070924
  Transmission Date: 20080405
  Serious: Yes (Hospitalization)
  Sender: FDA-Public Use
  Company Number: FR-PURDUE-GBR_2007_0003302

PATIENT
  Age: 40 Year
  Sex: Male

DRUGS (3)
  1. OXYCONTIN [Suspect]
     Indication: PAIN
     Dosage: 10 MG, BID
     Route: 048
     Dates: start: 20070901, end: 20070917
  2. OXYCONTIN [Suspect]
     Dosage: 20 MG, PM
     Route: 048
     Dates: start: 20070917, end: 20070917
  3. OXYNORM CAPSULES 5 MG [Concomitant]
     Indication: PAIN
     Dosage: 5 MG, QID
     Route: 048
     Dates: start: 20070901

REACTIONS (1)
  - COMA [None]
